FAERS Safety Report 6315619-0 (Version None)
Quarter: 2009Q3

REPORT INFORMATION
  Report Type: 
  Country: None (occurrence: None)
  Receive Date: 20090818
  Receipt Date: 20090812
  Transmission Date: 20100115
  Serious: Yes (Hospitalization)
  Sender: FDA-Public Use
  Company Number: 2009SP019303

PATIENT
  Age: 56 Year
  Sex: Male

DRUGS (1)
  1. CELESTAMINE TAB [Suspect]
     Indication: CHRONIC SINUSITIS
     Dosage: PO
     Route: 048

REACTIONS (6)
  - ALLERGIC GRANULOMATOUS ANGIITIS [None]
  - HEARING IMPAIRED [None]
  - HYPERAESTHESIA [None]
  - MUSCULOSKELETAL STIFFNESS [None]
  - PYREXIA [None]
  - TESTICULAR PAIN [None]
